FAERS Safety Report 7497436-1 (Version None)
Quarter: 2011Q2

REPORT INFORMATION
  Report Type: 
  Country: None (occurrence: None)
  Receive Date: 20110523
  Receipt Date: 20110510
  Transmission Date: 20111010
  Serious: Yes (Hospitalization)
  Sender: FDA-Public Use
  Company Number: IT-TEVA-271978ISR

PATIENT
  Sex: Male
  Weight: 60 kg

DRUGS (16)
  1. ASPIRIN [Concomitant]
     Indication: THROMBOSIS PROPHYLAXIS
     Dosage: 100 MILLIGRAM;
     Route: 048
     Dates: start: 20091016
  2. PAROXETINE HYDROCHLORIDE [Concomitant]
     Indication: DEPRESSION
     Dosage: 20 MILLIGRAM;
     Route: 048
     Dates: start: 20091022
  3. ACETAMINOPHEN [Concomitant]
     Route: 042
     Dates: start: 20110202, end: 20110202
  4. ANTIBIOTICS [Concomitant]
     Indication: PYREXIA
     Route: 048
     Dates: start: 20110126, end: 20110201
  5. METOCLOPRAMIDE [Concomitant]
     Indication: HICCUPS
     Route: 048
     Dates: start: 20091223
  6. LANSOPRAZOLE [Concomitant]
     Indication: GASTRITIS PROPHYLAXIS
     Dosage: 30 MILLIGRAM;
     Route: 048
     Dates: start: 20090928
  7. OXYCODONE HCL [Concomitant]
     Indication: PAIN PROPHYLAXIS
     Dosage: 5 MILLIGRAM;
     Route: 048
     Dates: start: 20100401
  8. GEZOR [Concomitant]
     Indication: HYPERTENSION
     Dates: start: 20000101
  9. DEXAMETHASONE [Suspect]
     Dates: start: 20110216
  10. ACETAMINOPHEN [Concomitant]
     Indication: PYREXIA
     Route: 048
     Dates: start: 20110126, end: 20110201
  11. DEXAMETHASONE [Suspect]
     Indication: MULTIPLE MYELOMA
     Dates: start: 20091016
  12. LENALIDOMIDE [Suspect]
     Indication: MULTIPLE MYELOMA
     Route: 048
     Dates: start: 20091016
  13. LENALIDOMIDE [Suspect]
     Route: 048
     Dates: start: 20110216
  14. FERROUS SULFATE TAB [Concomitant]
     Indication: ANAEMIA
     Dosage: 105 MILLIGRAM;
     Route: 048
     Dates: start: 20090401, end: 20110209
  15. ZOLEDRONIC ACID [Concomitant]
     Indication: BONE LESION
     Dosage: .0044 MILLIGRAM;
     Route: 042
     Dates: start: 20090928
  16. PANADEINE CO [Concomitant]
     Indication: PELVIC PAIN
     Route: 048
     Dates: start: 20101118

REACTIONS (3)
  - ACUTE RESPIRATORY FAILURE [None]
  - BRONCHITIS [None]
  - SEPSIS [None]
